FAERS Safety Report 6152299-1 (Version None)
Quarter: 2009Q2

REPORT INFORMATION
  Report Type: 
  Country: None (occurrence: None)
  Receive Date: 20090410
  Receipt Date: 20090408
  Transmission Date: 20091009
  Serious: Yes (Hospitalization)
  Sender: FDA-Public Use
  Company Number: CG-MERCK-0904USA01123

PATIENT
  Age: 38 Year
  Sex: Female

DRUGS (1)
  1. STROMECTOL [Suspect]
     Indication: ONCHOCERCIASIS
     Route: 048
     Dates: start: 20081213, end: 20081213

REACTIONS (4)
  - ABNORMAL BEHAVIOUR [None]
  - ASTHENIA [None]
  - HEADACHE [None]
  - VERTIGO [None]
